FAERS Safety Report 8188027-8 (Version None)
Quarter: 2012Q1

REPORT INFORMATION
  Report Type: 
  Country: None (occurrence: None)
  Receive Date: 20120306
  Receipt Date: 20120221
  Transmission Date: 20120608
  Serious: Yes (Other)
  Sender: FDA-Public Use
  Company Number: KP-WATSON-2012-03240

PATIENT
  Age: 55 Year
  Sex: Male

DRUGS (1)
  1. METRONIDAZOLE [Suspect]
     Indication: COLITIS ISCHAEMIC
     Dosage: 21 GRAMS (CUMULATIVE)
     Route: 065

REACTIONS (4)
  - TOXIC ENCEPHALOPATHY [None]
  - DYSARTHRIA [None]
  - PARAESTHESIA [None]
  - GAIT DISTURBANCE [None]
